FAERS Safety Report 4741806-9 (Version None)
Quarter: 2005Q3

REPORT INFORMATION
  Report Type: 
  Country: None (occurrence: None)
  Receive Date: 20050808
  Receipt Date: 20050728
  Transmission Date: 20060218
  Serious: Yes (Hospitalization, Other)
  Sender: FDA-Public Use
  Company Number: 2005013540

PATIENT
  Age: 28 Year
  Sex: Female

DRUGS (3)
  1. PREDNISONE [Suspect]
     Indication: ROSACEA
     Dosage: 35 MG (35 MG, 1 IN 1 D), ORAL
     Route: 048
  2. ERYTHROMYCIN [Suspect]
     Indication: ROSACEA
     Dosage: (1500 MG , 1 IN 1 D), ORAL
     Route: 048
  3. INSULIN [Suspect]
     Indication: DIABETES MELLITUS
     Dosage: 1 IN 1 D

REACTIONS (6)
  - CAESAREAN SECTION [None]
  - DRUG EXPOSURE DURING PREGNANCY [None]
  - FAILED INDUCTION OF LABOUR [None]
  - GESTATIONAL DIABETES [None]
  - OLIGOHYDRAMNIOS [None]
  - PREGNANCY [None]
